FAERS Safety Report 6056856-2 (Version None)
Quarter: 2009Q1

REPORT INFORMATION
  Report Type: 
  Country: None (occurrence: None)
  Receive Date: 20090129
  Receipt Date: 20090122
  Transmission Date: 20090719
  Serious: Yes (Other)
  Sender: FDA-Public Use
  Company Number: A0718454A

PATIENT
  Age: 56 Year
  Sex: Male
  Weight: 122.7 kg

DRUGS (7)
  1. AVANDIA [Suspect]
     Dates: start: 20050125, end: 20070519
  2. AVANDAMET [Suspect]
     Dates: start: 20050125, end: 20070519
  3. AVANDARYL [Suspect]
     Dates: start: 20050125, end: 20070519
  4. ACTOS [Concomitant]
     Dates: start: 20010320, end: 20080501
  5. LANTUS [Concomitant]
     Dates: start: 20050101
  6. GLUCOTROL XL [Concomitant]
     Dates: start: 20010101, end: 20080301
  7. STARLIX [Concomitant]
     Dates: start: 20070101

REACTIONS (4)
  - CARDIAC DISORDER [None]
  - CEREBROVASCULAR ACCIDENT [None]
  - MYOCARDIAL INFARCTION [None]
  - NERVE INJURY [None]
